FAERS Safety Report 23450897 (Version 1)
Quarter: 2024Q1

REPORT INFORMATION
  Report Type: Spontaneous
  Country: US (occurrence: US)
  Receive Date: 20240129
  Receipt Date: 20240129
  Transmission Date: 20240410
  Serious: No
  Sender: FDA-Public Use
  Company Number: US-TARSUS PHARMACEUTICALS-TSP-US-2023-000034

PATIENT
  Age: 61 Year
  Sex: Female

DRUGS (2)
  1. XDEMVY [Interacting]
     Active Substance: LOTILANER
     Indication: Demodex blepharitis
     Dosage: UNK (ABOUT 11 DAYS)
     Route: 047
     Dates: start: 20231023, end: 20231102
  2. ERYTHROMYCIN [Interacting]
     Active Substance: ERYTHROMYCIN
     Indication: Product used for unknown indication
     Dosage: UNK
     Route: 065
     Dates: start: 20231030, end: 20231031

REACTIONS (6)
  - Drug interaction [Unknown]
  - Instillation site irritation [Recovered/Resolved]
  - Eye pain [Recovered/Resolved]
  - Ocular hyperaemia [Recovered/Resolved]
  - Eye irritation [Recovered/Resolved]
  - Condition aggravated [Recovered/Resolved]

NARRATIVE: CASE EVENT DATE: 20231029
